FAERS Safety Report 5744434-1 (Version None)
Quarter: 2008Q2

REPORT INFORMATION
  Report Type: 
  Country: None (occurrence: None)
  Receive Date: 20080520
  Receipt Date: 20080508
  Transmission Date: 20081010
  Serious: Yes (Other)
  Sender: FDA-Public Use
  Company Number: CA-ROCHE-563338

PATIENT
  Age: 58 Year
  Sex: Male

DRUGS (10)
  1. CELLCEPT [Suspect]
     Route: 065
  2. SIMULECT [Suspect]
     Indication: DRUG USE FOR UNKNOWN INDICATION
     Route: 065
  3. TACROLIMUS [Suspect]
     Indication: DRUG USE FOR UNKNOWN INDICATION
     Route: 065
  4. VALGANCICLOVIR HCL [Concomitant]
  5. COTRIM [Concomitant]
  6. COTRIM [Concomitant]
  7. RAMIPRIL [Concomitant]
  8. ASPIRIN [Concomitant]
  9. PANTOPRAZOLE SODIUM [Concomitant]
  10. INSULIN [Concomitant]

REACTIONS (7)
  - ABDOMINAL DISCOMFORT [None]
  - CONSTIPATION [None]
  - CYTOMEGALOVIRUS INFECTION [None]
  - DIARRHOEA [None]
  - IMPAIRED GASTRIC EMPTYING [None]
  - NAUSEA [None]
  - VOMITING [None]
